FAERS Safety Report 9899993 (Version 1)
Quarter: 2014Q1

REPORT INFORMATION
  Report Type: Not Available
  Country: US (occurrence: US)
  Receive Date: 20140214
  Receipt Date: 20140214
  Transmission Date: 20141002
  Serious: No
  Sender: FDA-Public Use
  Company Number: US-VIVUS-2013V1000868

PATIENT
  Age: 55 Year
  Sex: Female
  Weight: 104.42 kg

DRUGS (6)
  1. QSYMIA 7.5MG/46MG [Suspect]
     Indication: WEIGHT DECREASED
     Route: 048
     Dates: end: 20131124
  2. QSYMIA 7.5MG/46MG [Suspect]
     Route: 048
     Dates: start: 20131125, end: 20131201
  3. QSYMIA 3.75MG/23MG [Suspect]
     Indication: WEIGHT DECREASED
     Route: 048
     Dates: start: 201308
  4. QSYMIA 3.75MG/23MG [Suspect]
     Route: 048
     Dates: start: 20131202, end: 20131208
  5. LOSARTAN [Concomitant]
     Indication: HYPERTENSION
     Dosage: STARTED AROUND 5-6 YEARS AGO
     Route: 048
  6. METFORMIN [Concomitant]
     Indication: TYPE 2 DIABETES MELLITUS
     Dosage: STARTED 10 YEARS AGO
     Route: 048
     Dates: start: 2003

REACTIONS (1)
  - Blood pressure increased [Unknown]
